FAERS Safety Report 15606560 (Version 1)
Quarter: 2018Q4

REPORT INFORMATION
  Report Type: Report from Study
  Country: None (occurrence: US)
  Receive Date: 20181112
  Receipt Date: 20181112
  Transmission Date: 20190205
  Serious: Yes (Congenital Anomaly, Other)
  Sender: FDA-Public Use
  Company Number: US-ABBVIE-18K-163-2546219-00

PATIENT
  Sex: Female

DRUGS (2)
  1. HUMIRA [Suspect]
     Active Substance: ADALIMUMAB
     Indication: CONGENITAL SYPHILITIC OSTEOCHONDRITIS
     Route: 058
  2. HUMIRA [Suspect]
     Active Substance: ADALIMUMAB
     Indication: CROHN^S DISEASE
     Route: 058

REACTIONS (6)
  - Therapeutic response unexpected [Recovered/Resolved]
  - Leukaemia [Not Recovered/Not Resolved]
  - Inflammatory marker increased [Unknown]
  - Pre-existing condition improved [Recovering/Resolving]
  - Proctalgia [Not Recovered/Not Resolved]
  - Congenital syphilitic osteochondritis [Unknown]
